FAERS Safety Report 9801176 (Version 3)
Quarter: 2014Q2

REPORT INFORMATION
  Report Type: Spontaneous
  Country: US (occurrence: US)
  Receive Date: 20140107
  Receipt Date: 20140408
  Transmission Date: 20141212
  Serious: Yes (Hospitalization)
  Sender: FDA-Public Use
  Company Number: US-GILEAD-2014-0091434

PATIENT
  Age: 74 Year
  Sex: Male

DRUGS (2)
  1. LETAIRIS [Suspect]
     Indication: PULMONARY ARTERIAL HYPERTENSION
     Dosage: 5 MG, QD
     Route: 048
     Dates: start: 20130624
  2. TYVASO [Concomitant]

REACTIONS (5)
  - Blood pressure decreased [Unknown]
  - Wound infection [Unknown]
  - Burning sensation [Unknown]
  - Abdominal pain upper [Unknown]
  - Rash [Unknown]
